FAERS Safety Report 5360406-3 (Version None)
Quarter: 2007Q2

REPORT INFORMATION
  Report Type: 
  Country: None (occurrence: None)
  Receive Date: 20070612
  Receipt Date: 20070606
  Transmission Date: 20071010
  Serious: Yes (Hospitalization)
  Sender: FDA-Public Use
  Company Number: VNL_00594_2007

PATIENT
  Sex: Male
  Weight: 56.6996 kg

DRUGS (1)
  1. APOKYN [Suspect]
     Indication: PARKINSON'S DISEASE
     Dosage: SUBCUTANEOUS
     Route: 058
     Dates: start: 20070401

REACTIONS (4)
  - FALL [None]
  - HALLUCINATION, VISUAL [None]
  - HEAD INJURY [None]
  - TRANSIENT ISCHAEMIC ATTACK [None]
